APPROVED DRUG PRODUCT: DOCA
Active Ingredient: DESOXYCORTICOSTERONE ACETATE
Strength: 5MG/ML
Dosage Form/Route: INJECTABLE;INJECTION
Application: N001104 | Product #001
Applicant: ORGANON USA INC
Approved: Approved Prior to Jan 1, 1982 | RLD: No | RS: No | Type: DISCN